FAERS Safety Report 5348876-8 (Version None)
Quarter: 2007Q2

REPORT INFORMATION
  Report Type: 
  Country: None (occurrence: None)
  Receive Date: 20070607
  Receipt Date: 20070530
  Transmission Date: 20071010
  Serious: Yes (Other)
  Sender: FDA-Public Use
  Company Number: PHBS2007PA08964

PATIENT
  Age: 1 Year
  Sex: Female

DRUGS (3)
  1. TEMPRA [Concomitant]
  2. ENTEROGLIMIN [Concomitant]
  3. CATAFLAM [Suspect]
     Indication: PYREXIA
     Dosage: 1 DRP/KG EVERY 6 HOURS
     Route: 048

REACTIONS (1)
  - VAGINAL HAEMORRHAGE [None]
